FAERS Safety Report 7207116-5 (Version None)
Quarter: 2011Q1

REPORT INFORMATION
  Report Type: 
  Country: None (occurrence: None)
  Receive Date: 20110103
  Receipt Date: 20101221
  Transmission Date: 20110831
  Serious: Yes (Hospitalization)
  Sender: FDA-Public Use
  Company Number: PHHY2010CH86860

PATIENT
  Age: 77 Year
  Sex: Male

DRUGS (3)
  1. GLEEVEC [Suspect]
     Indication: GASTROINTESTINAL STROMAL TUMOUR
     Dosage: 400 MG, UNK
     Dates: start: 20100619, end: 20101119
  2. NEXIUM [Concomitant]
  3. BELOC ZOK [Concomitant]
     Dosage: UNK
     Dates: start: 20100913

REACTIONS (4)
  - LUNG INFILTRATION [None]
  - PRODUCTIVE COUGH [None]
  - ALVEOLITIS [None]
  - DYSPNOEA EXERTIONAL [None]
